FAERS Safety Report 14397008 (Version 1)
Quarter: 2018Q1

REPORT INFORMATION
  Report Type: Spontaneous
  Country: US (occurrence: US)
  Receive Date: 20180116
  Receipt Date: 20180116
  Transmission Date: 20180509
  Serious: No
  Sender: FDA-Public Use
  Company Number: US-ALLERGAN-1750017US

PATIENT
  Age: 42 Year
  Sex: Female
  Weight: 79.82 kg

DRUGS (7)
  1. BOTOX [Suspect]
     Active Substance: ONABOTULINUMTOXINA
     Dosage: 40 UNITS, SINGLE
     Route: 030
     Dates: start: 20170825, end: 20170825
  2. BOTOX [Suspect]
     Active Substance: ONABOTULINUMTOXINA
     Dosage: 20 UNK, UNK
     Route: 030
     Dates: start: 20170825, end: 20170825
  3. BOTOX [Suspect]
     Active Substance: ONABOTULINUMTOXINA
     Indication: MIGRAINE
     Dosage: 10 UNITS, SINGLE
     Route: 030
     Dates: start: 20170825, end: 20170825
  4. BOTOX [Suspect]
     Active Substance: ONABOTULINUMTOXINA
     Dosage: 30 UNK, UNK
     Route: 030
     Dates: start: 20170825, end: 20170825
  5. BOTOX [Suspect]
     Active Substance: ONABOTULINUMTOXINA
     Dosage: 20 UNITS, SINGLE
     Route: 030
     Dates: start: 20170825, end: 20170825
  6. BOTOX [Suspect]
     Active Substance: ONABOTULINUMTOXINA
     Dosage: 30 UNITS, SINGLE
     Route: 030
     Dates: start: 20170825, end: 20170825
  7. BOTOX [Suspect]
     Active Substance: ONABOTULINUMTOXINA
     Dosage: 5 UNITS, SINGLE
     Route: 030
     Dates: start: 20170825, end: 20170825

REACTIONS (2)
  - Diplopia [Unknown]
  - Eyelid ptosis [Unknown]

NARRATIVE: CASE EVENT DATE: 20170829
